FAERS Safety Report 8610314 (Version 8)
Quarter: 2013Q1

REPORT INFORMATION
  Report Type: Spontaneous
  Country: US (occurrence: US)
  Receive Date: 20120612
  Receipt Date: 20130201
  Transmission Date: 20140127
  Serious: Yes (Death, Hospitalization)
  Sender: FDA-Public Use
  Company Number: US-GILEAD-2012-0056373

PATIENT
  Age: 80 Year
  Sex: Female

DRUGS (2)
  1. LETAIRIS [Suspect]
     Indication: PULMONARY ARTERIAL HYPERTENSION
     Dosage: 10 MG, UNK
     Route: 048
     Dates: start: 20090701
  2. ADCIRCA [Concomitant]

REACTIONS (4)
  - Death [Fatal]
  - Cerebrovascular accident [Unknown]
  - Hemiplegia [Unknown]
  - Speech disorder [Unknown]
